FAERS Safety Report 6546346-2 (Version None)
Quarter: 2010Q1

REPORT INFORMATION
  Report Type: 
  Country: None (occurrence: None)
  Receive Date: 20100115
  Receipt Date: 20091229
  Transmission Date: 20100710
  Serious: No
  Sender: FDA-Public Use
  Company Number: 2009-00915

PATIENT
  Age: 72 Year
  Sex: Female
  Weight: 52.1637 kg

DRUGS (5)
  1. COLD REMEDY GEL SWABS [Suspect]
     Dosage: ^ON/OFF^ - 4/5 YEARS; 4/5 YEARS AGO - RECENT
  2. MULTI-VITAMIN [Concomitant]
  3. FISH OIL [Concomitant]
  4. VITAMIN C [Concomitant]
  5. VITAMIN B COMPLEX CAP [Concomitant]

REACTIONS (2)
  - AGEUSIA [None]
  - ANOSMIA [None]
